FAERS Safety Report 4863592-4 (Version None)
Quarter: 2005Q4

REPORT INFORMATION
  Report Type: 
  Country: None (occurrence: None)
  Receive Date: 20051222
  Receipt Date: 20050513
  Transmission Date: 20060501
  Serious: Yes (Other)
  Sender: FDA-Public Use
  Company Number: US-GLAXOSMITHKLINE-A0558519A

PATIENT
  Age: 69 Year
  Sex: Female

DRUGS (5)
  1. FLONASE [Suspect]
     Dosage: 200MCG PER DAY
     Route: 045
     Dates: end: 20050510
  2. ATENOLOL [Concomitant]
  3. LANOXIN [Concomitant]
  4. HYDROCHLOROTHIAZIDE [Concomitant]
  5. ZOCOR [Concomitant]

REACTIONS (1)
  - GLAUCOMA [None]
